FAERS Safety Report 21917587 (Version 3)
Quarter: 2023Q2

REPORT INFORMATION
  Report Type: Report from Study
  Country: US (occurrence: US)
  Receive Date: 20230127
  Receipt Date: 20230616
  Transmission Date: 20230721
  Serious: Yes (Other)
  Sender: FDA-Public Use
  Company Number: US-ABBVIE-4283805

PATIENT
  Sex: Female

DRUGS (1)
  1. HUMIRA [Suspect]
     Active Substance: ADALIMUMAB
     Indication: Hidradenitis
     Route: 058
     Dates: start: 2016

REACTIONS (9)
  - Breast mass [Unknown]
  - Immune system disorder [Unknown]
  - Therapeutic product effect decreased [Not Recovered/Not Resolved]
  - Drug hypersensitivity [Unknown]
  - Memory impairment [Unknown]
  - Squamous cell carcinoma [Unknown]
  - Breast disorder [Unknown]
  - Skin discolouration [Unknown]
  - Hidradenitis [Unknown]
